FAERS Safety Report 24378006 (Version 3)
Quarter: 2024Q4

REPORT INFORMATION
  Report Type: Spontaneous
  Country: US (occurrence: US)
  Receive Date: 20240930
  Receipt Date: 20241010
  Transmission Date: 20250115
  Serious: Yes (Other)
  Sender: GILEAD
  Company Number: US-GILEAD-2024-0689102

PATIENT
  Age: 31 Year
  Sex: Male

DRUGS (2)
  1. TRUVADA [Suspect]
     Active Substance: EMTRICITABINE\TENOFOVIR DISOPROXIL FUMARATE
     Indication: Prophylaxis against HIV infection
     Dosage: UNK
     Route: 065
     Dates: end: 202405
  2. XANAX [Concomitant]
     Active Substance: ALPRAZOLAM

REACTIONS (3)
  - IgA nephropathy [Unknown]
  - Haematuria [Unknown]
  - Proteinuria [Unknown]
